FAERS Safety Report 8176451 (Version 5)
Quarter: 2012Q4

REPORT INFORMATION
  Report Type: 
  Country: FI (occurrence: FI)
  Receive Date: 20111011
  Receipt Date: 20121130
  Transmission Date: 20130627
  Serious: Yes (Death, Life-Threatening, Hospitalization, Other)
  Sender: FDA-Public Use
  Company Number: FI-ROCHE-633204

PATIENT
  Age: 55 None
  Sex: Female

DRUGS (10)
  1. MABTHERA [Suspect]
     Indication: BEHCET^S SYNDROME
     Route: 042
     Dates: start: 20090114, end: 20090218
  2. MABTHERA [Suspect]
     Dosage: second cycle of rituximab
     Route: 042
     Dates: start: 20100303, end: 20100324
  3. METHOTREXATE [Suspect]
     Indication: BEHCET^S SYNDROME
     Route: 058
     Dates: start: 200708, end: 200806
  4. AZATHIOPRINE [Suspect]
     Indication: BEHCET^S SYNDROME
     Route: 048
     Dates: start: 200806, end: 200808
  5. CELLCEPT [Suspect]
     Indication: BEHCET^S SYNDROME
     Route: 048
     Dates: start: 200808, end: 201009
  6. CELLCEPT [Suspect]
     Route: 048
     Dates: start: 201012, end: 201102
  7. SANDIMMUN NEORAL [Suspect]
     Indication: BEHCET^S SYNDROME
     Route: 048
     Dates: start: 200802, end: 200802
  8. PREDNISOLONE [Suspect]
     Indication: BEHCET^S SYNDROME
     Route: 048
     Dates: start: 200705
  9. DAPSONE [Suspect]
     Indication: PRODUCT USED FOR UNKNOWN INDICATION
     Route: 065
  10. CYMEVENE [Concomitant]
     Indication: CYTOMEGALOVIRUS INFECTION

REACTIONS (8)
  - Progressive multifocal leukoencephalopathy [Fatal]
  - Cytomegalovirus colitis [Recovered/Resolved]
  - Lymphopenia [Not Recovered/Not Resolved]
  - Herpes simplex [Recovered/Resolved]
  - Pneumonia [Unknown]
  - Urosepsis [Unknown]
  - Pneumonia cytomegaloviral [Recovered/Resolved]
  - Hepatic enzyme increased [Not Recovered/Not Resolved]
